FAERS Safety Report 10857776 (Version 1)
Quarter: 2015Q1

REPORT INFORMATION
  Report Type: Spontaneous
  Country: US (occurrence: US)
  Receive Date: 20150223
  Receipt Date: 20150223
  Transmission Date: 20150721
  Serious: Yes (Other)
  Sender: FDA-Public Use
  Company Number: US-CELGENEUS-USA-2015022052

PATIENT
  Age: 66 Year
  Sex: Female
  Weight: 65.83 kg

DRUGS (5)
  1. OTEZLA [Suspect]
     Active Substance: APREMILAST
     Route: 048
     Dates: start: 20150201
  2. OTEZLA [Suspect]
     Active Substance: APREMILAST
     Indication: PSORIATIC ARTHROPATHY
     Route: 048
     Dates: start: 20141001, end: 20141014
  3. ZOLOFT [Concomitant]
     Active Substance: SERTRALINE HYDROCHLORIDE
     Indication: ANXIETY
     Route: 065
     Dates: start: 2005
  4. NALTREXONE [Concomitant]
     Active Substance: NALTREXONE
     Indication: WEIGHT CONTROL
     Route: 065
     Dates: start: 20130801
  5. AMBIEN [Concomitant]
     Active Substance: ZOLPIDEM TARTRATE
     Indication: INSOMNIA
     Route: 065
     Dates: start: 2005

REACTIONS (3)
  - Gastrointestinal pain [Not Recovered/Not Resolved]
  - Diarrhoea [Not Recovered/Not Resolved]
  - Diarrhoea [Unknown]

NARRATIVE: CASE EVENT DATE: 201410
